FAERS Safety Report 4423441-5 (Version None)
Quarter: 2004Q3

REPORT INFORMATION
  Report Type: 
  Country: None (occurrence: None)
  Receive Date: 20040713
  Receipt Date: 20040325
  Transmission Date: 20050211
  Serious: No
  Sender: FDA-Public Use
  Company Number: PHEH2004US03496

PATIENT
  Age: 38 Year
  Sex: Female

DRUGS (2)
  1. ELIDEL [Suspect]
     Indication: SKIN DISORDER
     Dosage: TOPICAL
     Route: 061
     Dates: start: 20040315
  2. ANTIBIOTICS [Concomitant]

REACTIONS (5)
  - DYSPNOEA [None]
  - FATIGUE [None]
  - FEELING ABNORMAL [None]
  - PHARYNGOLARYNGEAL PAIN [None]
  - PYREXIA [None]
